FAERS Safety Report 25400175 (Version 2)
Quarter: 2025Q3

REPORT INFORMATION
  Report Type: Spontaneous
  Country: BR (occurrence: BR)
  Receive Date: 20250605
  Receipt Date: 20250803
  Transmission Date: 20251021
  Serious: Yes (Other)
  Sender: ABBVIE
  Company Number: BR-ABBOTT-2025A-1399698

PATIENT
  Sex: Male
  Weight: 73 kg

DRUGS (1)
  1. DEPAKOTE SPRINKLES [Suspect]
     Active Substance: DIVALPROEX SODIUM
     Indication: Brain injury
     Route: 048

REACTIONS (4)
  - Respiratory therapy [Unknown]
  - Product quality issue [Unknown]
  - Sleep apnoea syndrome [Unknown]
  - Scoliosis [Unknown]

NARRATIVE: CASE EVENT DATE: 20130101
